FAERS Safety Report 22523911 (Version 2)
Quarter: 2023Q2

REPORT INFORMATION
  Report Type: Spontaneous
  Country: CN (occurrence: CN)
  Receive Date: 20230606
  Receipt Date: 20230615
  Transmission Date: 20230722
  Serious: Yes (Hospitalization, Disabling, Other)
  Sender: FDA-Public Use
  Company Number: CN-BRISTOL-MYERS SQUIBB COMPANY-2023-078524

PATIENT
  Age: 45 Year
  Sex: Male
  Weight: 78 kg

DRUGS (6)
  1. YERVOY [Suspect]
     Active Substance: IPILIMUMAB
     Indication: Hepatocellular carcinoma
     Route: 041
     Dates: start: 20230118, end: 20230118
  2. YERVOY [Suspect]
     Active Substance: IPILIMUMAB
     Indication: Lung neoplasm malignant
  3. YERVOY [Suspect]
     Active Substance: IPILIMUMAB
     Indication: Lymphoma
  4. YERVOY [Suspect]
     Active Substance: IPILIMUMAB
     Indication: Pleural effusion
  5. TISLELIZUMAB [Concomitant]
     Active Substance: TISLELIZUMAB
     Indication: Hepatocellular carcinoma
     Route: 042
     Dates: start: 20230118, end: 20230118
  6. REGORAFENIB [Concomitant]
     Active Substance: REGORAFENIB
     Indication: Hepatocellular carcinoma
     Route: 048
     Dates: start: 20230118, end: 20230206

REACTIONS (3)
  - Drug eruption [Recovering/Resolving]
  - Haematochezia [Unknown]
  - Off label use [Unknown]

NARRATIVE: CASE EVENT DATE: 20230207
